FAERS Safety Report 8228094-6 (Version None)
Quarter: 2012Q1

REPORT INFORMATION
  Report Type: 
  Country: None (occurrence: None)
  Receive Date: 20120322
  Receipt Date: 20120105
  Transmission Date: 20120608
  Serious: Yes (Other)
  Sender: FDA-Public Use
  Company Number: US-BRISTOL-MYERS SQUIBB COMPANY-16318057

PATIENT
  Age: 64 Year
  Sex: Female
  Weight: 52 kg

DRUGS (8)
  1. NAPROXEN (ALEVE) [Concomitant]
     Dosage: TAB
  2. OCEAN MIST [Concomitant]
     Dosage: OCEAN NASAL MIST 0.65% SPRAY AEROSOL
  3. NEOSPORIN [Concomitant]
     Dosage: 1 DF : 3.5MG-400UNIT-5000UNIT/G OINTMENT
  4. ERBITUX [Suspect]
     Indication: NASOPHARYNGEAL CANCER
     Route: 042
     Dates: start: 20110921, end: 20111206
  5. KEFLEX [Concomitant]
     Dosage: CAP
  6. MILK OF MAGNESIA TAB [Concomitant]
     Dosage: 1 DF : 400MG/5ML SUSP
     Route: 048
  7. BACITRACIN [Concomitant]
     Dosage: 1 DF : 500UNIT/G OINTMENT
  8. BIAFINE [Concomitant]
     Dosage: EMULSION
     Route: 061

REACTIONS (6)
  - RASH [None]
  - NEOPLASM MALIGNANT [None]
  - SCAB [None]
  - CONSTIPATION [None]
  - BACK PAIN [None]
  - RASH PUSTULAR [None]
